FAERS Safety Report 20406526 (Version 1)
Quarter: 2022Q1

REPORT INFORMATION
  Report Type: Spontaneous
  Country: US (occurrence: US)
  Receive Date: 20220131
  Receipt Date: 20220131
  Transmission Date: 20220423
  Serious: No
  Sender: FDA-Public Use
  Company Number: US-SA-SAC20220128000721

PATIENT

DRUGS (3)
  1. ALLEGRA ALLERGY [Suspect]
     Active Substance: FEXOFENADINE HYDROCHLORIDE
     Indication: Mycotic allergy
     Dosage: UNKNOWN
     Route: 065
  2. ALLEGRA ALLERGY [Suspect]
     Active Substance: FEXOFENADINE HYDROCHLORIDE
     Indication: Seasonal allergy
  3. ALLEGRA ALLERGY [Suspect]
     Active Substance: FEXOFENADINE HYDROCHLORIDE
     Indication: Allergy to plants

REACTIONS (3)
  - Rhinorrhoea [Unknown]
  - Upper-airway cough syndrome [Unknown]
  - Nasal congestion [Unknown]
